FAERS Safety Report 18961098 (Version 1)
Quarter: 2021Q1

REPORT INFORMATION
  Report Type: Spontaneous
  Country: DE (occurrence: DE)
  Receive Date: 20210302
  Receipt Date: 20210302
  Transmission Date: 20210420
  Serious: Yes (Other)
  Sender: FDA-Public Use
  Company Number: DE-ASTRAZENECA-2021A087494

PATIENT
  Sex: Female

DRUGS (3)
  1. PALBOCICLIB [Suspect]
     Active Substance: PALBOCICLIB
     Dosage: 600 MG
     Route: 048
  2. FULVESTRANT. [Suspect]
     Active Substance: FULVESTRANT
     Indication: BREAST CANCER
     Route: 030
     Dates: start: 201703, end: 202002
  3. PALBOCICLIB [Suspect]
     Active Substance: PALBOCICLIB
     Dosage: 2 INTO 400 MG (8 CAPSULES) DAILY
     Route: 048
     Dates: start: 201703, end: 202002

REACTIONS (7)
  - Metastases to pleura [Unknown]
  - Cough [Unknown]
  - Dyspnoea [Unknown]
  - Metastases to bone [Unknown]
  - Thrombocytopenia [Unknown]
  - Fatigue [Unknown]
  - Metastases to lung [Unknown]

NARRATIVE: CASE EVENT DATE: 202002
